FAERS Safety Report 25940887 (Version 1)
Quarter: 2025Q4

REPORT INFORMATION
  Report Type: Spontaneous
  Country: US (occurrence: None)
  Receive Date: 20251018
  Receipt Date: 20251018
  Transmission Date: 20260117
  Serious: No
  Sender: FDA-CTU
  Company Number: None

PATIENT
  Age: 4 Year
  Sex: Female
  Weight: 12.2 kg

DRUGS (3)
  1. CARBOPLATIN [Suspect]
     Active Substance: CARBOPLATIN
     Dates: end: 20251005
  2. ETOPOSIDE [Suspect]
     Active Substance: ETOPOSIDE
     Dates: end: 20251005
  3. MELPHALAN [Suspect]
     Active Substance: MELPHALAN
     Dates: end: 20251003

REACTIONS (6)
  - Frequent bowel movements [None]
  - Hypokalaemia [None]
  - Hypophosphataemia [None]
  - Staphylococcal infection [None]
  - Bacteraemia [None]
  - Mucosal inflammation [None]

NARRATIVE: CASE EVENT DATE: 20251009
